FAERS Safety Report 4346356-X (Version None)
Quarter: 2004Q1

REPORT INFORMATION
  Report Type: 
  Country: None (occurrence: None)
  Receive Date: 20040325
  Receipt Date: 20031230
  Transmission Date: 20041129
  Serious: No
  Sender: FDA-Public Use
  Company Number: USA030946583

PATIENT
  Age: 57 Year
  Sex: Female
  Weight: 61 kg

DRUGS (7)
  1. FORTEO [Suspect]
     Indication: OSTEOPOROSIS
     Dates: start: 20030904
  2. CALCIUM [Concomitant]
  3. MIACALCIN [Concomitant]
  4. TEGRETOL [Concomitant]
  5. PAMELOR [Concomitant]
  6. FOSAMAX [Concomitant]
  7. MULTI-VITAMINS [Concomitant]

REACTIONS (11)
  - ABDOMINAL DISTENSION [None]
  - BLOOD PRESSURE INCREASED [None]
  - EAR PAIN [None]
  - FEELING HOT [None]
  - HEART RATE INCREASED [None]
  - INJECTION SITE BURNING [None]
  - INJECTION SITE HAEMORRHAGE [None]
  - INJECTION SITE STINGING [None]
  - NASAL CONGESTION [None]
  - SENSATION OF PRESSURE [None]
  - WEIGHT INCREASED [None]
